FAERS Safety Report 10434148 (Version 1)
Quarter: 2014Q3

REPORT INFORMATION
  Report Type: Not Available
  Country: CN (occurrence: CN)
  Receive Date: 20140905
  Receipt Date: 20140905
  Transmission Date: 20150326
  Serious: Yes (Hospitalization, Other)
  Sender: FDA-Public Use
  Company Number: CN-NAPPMUNDI-GBR-2014-0021071

PATIENT
  Age: 75 Year
  Sex: Male

DRUGS (1)
  1. MS CONTIN [Suspect]
     Active Substance: MORPHINE SULFATE
     Indication: PAIN IN EXTREMITY
     Dosage: 30 MG, DAILY
     Route: 048
     Dates: start: 20131022, end: 20131022

REACTIONS (5)
  - Lethargy [Unknown]
  - Toxicity to various agents [Unknown]
  - Somnolence [Recovering/Resolving]
  - Miosis [Unknown]
  - Anuria [Recovering/Resolving]

NARRATIVE: CASE EVENT DATE: 20131023
